FAERS Safety Report 7057365-4 (Version None)
Quarter: 2010Q4

REPORT INFORMATION
  Report Type: 
  Country: None (occurrence: None)
  Receive Date: 20101022
  Receipt Date: 20101013
  Transmission Date: 20110411
  Serious: Yes (Other)
  Sender: FDA-Public Use
  Company Number: DE-JNJFOC-20101003705

PATIENT
  Sex: Male

DRUGS (1)
  1. REMICADE [Suspect]
     Indication: ANKYLOSING SPONDYLITIS
     Dosage: 2 INFUSIONS THUS FAR
     Route: 042

REACTIONS (5)
  - ARTHRALGIA [None]
  - CARDIOVASCULAR DISORDER [None]
  - CHILLS [None]
  - HYPERHIDROSIS [None]
  - INFUSION RELATED REACTION [None]
